FAERS Safety Report 12577869 (Version 1)
Quarter: 2016Q3

REPORT INFORMATION
  Report Type: Spontaneous
  Country: US (occurrence: None)
  Receive Date: 20160720
  Receipt Date: 20160720
  Transmission Date: 20161109
  Serious: No
  Sender: FDA-Public Use
  Company Number: None

PATIENT
  Age: 54 Year
  Sex: Male
  Weight: 83.92 kg

DRUGS (4)
  1. MELATONIN [Concomitant]
     Active Substance: MELATONIN
  2. TAMSULOSIN HAS CAPS 0.4MG, .4 MG ZYDUS [Suspect]
     Active Substance: TAMSULOSIN HYDROCHLORIDE
     Indication: HYPERTONIC BLADDER
     Dosage: 1 TABLET(S) IN THE MORNING TAKEN BY MOUTH
     Route: 048
     Dates: start: 20160714
  3. DIPHENHYDRAMINE. [Concomitant]
     Active Substance: DIPHENHYDRAMINE
  4. IC ATORVASTATIN 80MG - SUB FOR LIPITOR MYLAN [Concomitant]
     Active Substance: ATORVASTATIN

REACTIONS (3)
  - Semen volume decreased [None]
  - Libido decreased [None]
  - Semen analysis abnormal [None]

NARRATIVE: CASE EVENT DATE: 20160718
